FAERS Safety Report 25554798 (Version 1)
Quarter: 2025Q3

REPORT INFORMATION
  Report Type: Spontaneous
  Country: US (occurrence: None)
  Receive Date: 20250714
  Receipt Date: 20250714
  Transmission Date: 20251021
  Serious: Yes (Hospitalization)
  Sender: FDA-CTU
  Company Number: None

PATIENT
  Age: 59 Year
  Sex: Female

DRUGS (1)
  1. TYMLOS [Suspect]
     Active Substance: ABALOPARATIDE
     Dosage: FREQUENCY : DAILY;?STRENGTH: 3120MCG/1.56ML
     Route: 058

REACTIONS (6)
  - Muscle spasms [None]
  - Injection site swelling [None]
  - Pollakiuria [None]
  - Pain in extremity [None]
  - Transient ischaemic attack [None]
  - Ophthalmic migraine [None]
